FAERS Safety Report 12904501 (Version 2)
Quarter: 2016Q4

REPORT INFORMATION
  Report Type: Spontaneous
  Country: CH (occurrence: SI)
  Receive Date: 20161102
  Receipt Date: 20161108
  Transmission Date: 20170207
  Serious: Yes (Other)
  Sender: FDA-Public Use
  Company Number: CH-LPDUSPRD-20160966

PATIENT
  Age: 34 Year
  Sex: Female

DRUGS (2)
  1. MALTOFER [Concomitant]
     Active Substance: IRON POLYMALTOSE
     Dosage: UNKNOWN
  2. FERINJECT [Suspect]
     Active Substance: FERRIC CARBOXYMALTOSE
     Dosage: 1000 MG
     Route: 042
     Dates: start: 20140416, end: 20140416

REACTIONS (1)
  - Helicobacter gastritis [Unknown]

NARRATIVE: CASE EVENT DATE: 201409
